FAERS Safety Report 5615321-4 (Version None)
Quarter: 2008Q1

REPORT INFORMATION
  Report Type: 
  Country: None (occurrence: None)
  Receive Date: 20080206
  Receipt Date: 20080204
  Transmission Date: 20080703
  Serious: Yes (Other)
  Sender: FDA-Public Use
  Company Number: B0505851A

PATIENT
  Age: 59 Year
  Sex: Male
  Weight: 55 kg

DRUGS (43)
  1. ALKERAN [Suspect]
     Indication: ALLOGENIC BONE MARROW TRANSPLANTATION THERAPY
     Dosage: 225MG PER DAY
     Route: 042
     Dates: start: 20070926, end: 20070926
  2. FLUDARA [Suspect]
     Indication: ALLOGENIC BONE MARROW TRANSPLANTATION THERAPY
     Dosage: 40MG PER DAY
     Route: 042
     Dates: start: 20070921, end: 20070925
  3. SANDIMMUNE [Suspect]
     Indication: IMMUNOSUPPRESSANT DRUG THERAPY
     Dosage: 170MG PER DAY
     Route: 042
     Dates: start: 20070927, end: 20070929
  4. SANDIMMUNE [Suspect]
     Dosage: 120MG PER DAY
     Route: 042
     Dates: start: 20070930, end: 20071001
  5. SANDIMMUNE [Suspect]
     Dosage: 160MG PER DAY
     Route: 042
     Dates: start: 20071002, end: 20071009
  6. SANDIMMUNE [Suspect]
     Dosage: 210MG PER DAY
     Route: 042
     Dates: start: 20071010, end: 20071012
  7. SANDIMMUNE [Suspect]
     Dosage: 180MG PER DAY
     Route: 042
     Dates: start: 20071013, end: 20071015
  8. SANDIMMUNE [Suspect]
     Dosage: 220MG PER DAY
     Route: 042
     Dates: start: 20071016, end: 20071019
  9. SANDIMMUNE [Suspect]
     Dosage: 200MG PER DAY
     Route: 042
     Dates: start: 20071020, end: 20071022
  10. SANDIMMUNE [Suspect]
     Dosage: 170MG PER DAY
     Route: 042
     Dates: start: 20071023, end: 20071026
  11. SANDIMMUNE [Suspect]
     Dosage: 130MG PER DAY
     Route: 042
     Dates: start: 20071027, end: 20071030
  12. METHOTREXATE [Suspect]
     Indication: DRUG USE FOR UNKNOWN INDICATION
     Dosage: 16MG PER DAY
     Route: 042
     Dates: start: 20070929, end: 20070929
  13. METHOTREXATE [Suspect]
     Dosage: 11MG PER DAY
     Route: 042
     Dates: start: 20071001, end: 20071001
  14. METHOTREXATE [Suspect]
     Dosage: 11MG PER DAY
     Route: 042
     Dates: start: 20071004, end: 20071004
  15. TAKEPRON [Concomitant]
     Dosage: 30MG PER DAY
     Route: 048
     Dates: start: 20071001, end: 20071128
  16. TAKEPRON [Concomitant]
     Dosage: 30MG TWICE PER DAY
     Route: 048
     Dates: start: 20071129, end: 20071129
  17. TAKEPRON [Concomitant]
     Dosage: 30MG PER DAY
     Route: 048
     Dates: start: 20071130, end: 20080102
  18. ALLOID G [Concomitant]
     Dosage: 10ML FOUR TIMES PER DAY
     Route: 048
     Dates: start: 20071002, end: 20071129
  19. BORRAZA-G [Concomitant]
     Dosage: 1.2G TWICE PER DAY
     Route: 061
     Dates: start: 20070928, end: 20071004
  20. BORRAZA-G [Concomitant]
     Dosage: 1.2G TWICE PER DAY
     Route: 061
     Dates: start: 20071008, end: 20071014
  21. FUROSEMIDE [Concomitant]
     Route: 042
     Dates: start: 20070928, end: 20070928
  22. MAXIPIME [Concomitant]
     Route: 042
     Dates: start: 20070928, end: 20071007
  23. MAXIPIME [Concomitant]
     Route: 042
     Dates: start: 20071008, end: 20071008
  24. HYDROCORTONE [Concomitant]
     Dates: start: 20070928, end: 20070928
  25. ZOVIRAX [Concomitant]
     Route: 042
     Dates: start: 20070928, end: 20071102
  26. GASTER [Concomitant]
     Route: 042
     Dates: start: 20070928, end: 20071002
  27. PRODIF [Concomitant]
     Route: 042
     Dates: start: 20070928, end: 20071029
  28. ISCOTIN [Concomitant]
     Dates: start: 20070928, end: 20071029
  29. NEORAL [Concomitant]
     Dosage: 130MG TWICE PER DAY
     Route: 048
     Dates: start: 20071101, end: 20071105
  30. NEORAL [Concomitant]
     Dosage: 120MG TWICE PER DAY
     Route: 048
     Dates: start: 20071106, end: 20071108
  31. NEORAL [Concomitant]
     Dosage: 110MG TWICE PER DAY
     Route: 048
     Dates: start: 20071109, end: 20071111
  32. NEORAL [Concomitant]
     Dosage: 110MG PER DAY
     Route: 048
     Dates: start: 20071112, end: 20071112
  33. NEORAL [Concomitant]
     Dosage: 130MG PER DAY
     Route: 048
     Dates: start: 20071114, end: 20071114
  34. NEORAL [Concomitant]
     Dosage: 130MG TWICE PER DAY
     Route: 048
     Dates: start: 20071115, end: 20071116
  35. NEORAL [Concomitant]
     Dosage: 120MG TWICE PER DAY
     Route: 048
     Dates: start: 20071117, end: 20071119
  36. NEORAL [Concomitant]
     Dosage: 110MG TWICE PER DAY
     Route: 048
     Dates: start: 20071120, end: 20071122
  37. NEORAL [Concomitant]
     Dosage: 210MG PER DAY
     Route: 048
     Dates: start: 20071123, end: 20071128
  38. NEORAL [Concomitant]
     Route: 048
     Dates: start: 20071129, end: 20071129
  39. NEORAL [Concomitant]
     Dosage: 100MG TWICE PER DAY
     Route: 048
     Dates: start: 20071130, end: 20071205
  40. NEORAL [Concomitant]
     Dosage: 190MG PER DAY
     Route: 048
     Dates: start: 20071206, end: 20071212
  41. NEORAL [Concomitant]
     Dosage: 180MG TWICE PER DAY
     Route: 048
     Dates: start: 20071213, end: 20071219
  42. NEORAL [Concomitant]
     Dosage: 170MG PER DAY
     Route: 048
     Dates: start: 20071220, end: 20071226
  43. NEORAL [Concomitant]
     Dosage: 160MG TWICE PER DAY
     Route: 048
     Dates: start: 20071227, end: 20080102

REACTIONS (2)
  - MUCOUS MEMBRANE DISORDER [None]
  - NAUSEA [None]
